FAERS Safety Report 14657575 (Version 4)
Quarter: 2018Q2

REPORT INFORMATION
  Report Type: Spontaneous
  Country: ES (occurrence: ES)
  Receive Date: 20180319
  Receipt Date: 20180404
  Transmission Date: 20180711
  Serious: Yes (Hospitalization, Disabling, Other)
  Sender: FDA-Public Use
  Company Number: ES-009507513-1803ESP006756

PATIENT
  Age: 56 Year
  Sex: Female
  Weight: 62 kg

DRUGS (1)
  1. KEYTRUDA [Suspect]
     Active Substance: PEMBROLIZUMAB
     Indication: LUNG NEOPLASM MALIGNANT
     Dosage: 200 MG,EVERY 21 DAYS (Q3W)
     Route: 042
     Dates: start: 20180308

REACTIONS (1)
  - Tumour inflammation [Not Recovered/Not Resolved]

NARRATIVE: CASE EVENT DATE: 20180310
